FAERS Safety Report 9238041 (Version 1)
Quarter: 2013Q2

REPORT INFORMATION
  Report Type: Spontaneous
  Country: US (occurrence: None)
  Receive Date: 20130408
  Receipt Date: 20130408
  Transmission Date: 20140414
  Serious: Yes (Other)
  Sender: FDA-Public Use
  Company Number: 2013035039

PATIENT
  Sex: Female
  Weight: 97.52 kg

DRUGS (10)
  1. HIZENTRA (IMMUNOGLOBULIN HUMAN NORMAL) [Suspect]
     Indication: IMMUNODEFICIENCY COMMON VARIABLE
     Dosage: 10 G 1X/WEEK, 600 ML PER HOUR SUBCUTANEOUS
  2. LIDOCAINE/ PRILOCAINE (EMLA/ 00675501) [Concomitant]
  3. EPIPEN (EPINEPHRINE) [Concomitant]
  4. TYLENOL PM EXTRA STRENGTH (TYLENOL PM/01088101) [Concomitant]
  5. CALCIUM CITRATE W/D (CALCIUM WITH VITAMIN D) [Concomitant]
  6. VITAMIN D3 (COLECALCIFEROL) [Concomitant]
  7. FOLIC ACID (FOLIC ACID) [Concomitant]
  8. POTASSIUM GLUCONATE (POTASSIUM GLUCONATE) [Concomitant]
  9. VITAMIN B-12 (CYANOCOBALAMIN) [Concomitant]
  10. MAG-OXIDE (MAGNESIUM OXIDE) [Concomitant]

REACTIONS (2)
  - Headache [None]
  - Meningitis [None]
